FAERS Safety Report 9165158 (Version 4)
Quarter: 2014Q3

REPORT INFORMATION
  Report Type: Spontaneous
  Country: JP (occurrence: JP)
  Receive Date: 20130315
  Receipt Date: 20140711
  Transmission Date: 20150326
  Serious: Yes (Life-Threatening, Hospitalization)
  Sender: FDA-Public Use
  Company Number: JP-COVIDIEN/TYCO HEALTHCARE/MALLINCKRODT-T201301162

PATIENT
  Age: 79 Year
  Sex: Male
  Weight: 54 kg

DRUGS (3)
  1. TEGAFUR URACIL [Concomitant]
     Active Substance: TEGAFUR
     Indication: BLADDER CANCER
     Dosage: 150 MG, BID
     Route: 048
     Dates: start: 201105
  2. OPTIRAY [Suspect]
     Active Substance: IOVERSOL
     Indication: COMPUTERISED TOMOGRAM
     Dosage: 83 ML, SINGLE
     Route: 042
     Dates: start: 20130304, end: 20130304
  3. DONEPEZIL HYDROCHLORIDE. [Concomitant]
     Active Substance: DONEPEZIL HYDROCHLORIDE
     Indication: DEMENTIA ALZHEIMER^S TYPE
     Dosage: 5 MG, QD
     Route: 048

REACTIONS (1)
  - Anaphylactic shock [Recovered/Resolved]

NARRATIVE: CASE EVENT DATE: 20130304
